FAERS Safety Report 7744838-1 (Version None)
Quarter: 2011Q3

REPORT INFORMATION
  Report Type: 
  Country: None (occurrence: None)
  Receive Date: 20110912
  Receipt Date: 20110902
  Transmission Date: 20111222
  Serious: Yes (Other)
  Sender: FDA-Public Use
  Company Number: AU-GILEAD-2011-0043557

PATIENT
  Sex: Female
  Weight: 70 kg

DRUGS (9)
  1. VALIUM [Concomitant]
  2. NAPROSYN [Concomitant]
  3. XANAX [Concomitant]
  4. VALPROATE SODIUM [Concomitant]
  5. RABEPRAZOLE SODIUM [Concomitant]
  6. ATRIPLA [Suspect]
     Indication: HIV INFECTION
  7. ZIPRASIDONE HYDROCHLORIDE [Concomitant]
  8. BENZTROP [Concomitant]
  9. LEXAPRO [Concomitant]

REACTIONS (2)
  - HYDRONEPHROSIS [None]
  - URINARY TRACT INFECTION [None]
